FAERS Safety Report 18461227 (Version 1)
Quarter: 2020Q4

REPORT INFORMATION
  Report Type: Spontaneous
  Country: DE (occurrence: DE)
  Receive Date: 20201104
  Receipt Date: 20201104
  Transmission Date: 20210114
  Serious: Yes (Other)
  Sender: FDA-Public Use
  Company Number: DE-ROCHE-2707188

PATIENT
  Sex: Female

DRUGS (2)
  1. ATEZOLIZUMAB. [Suspect]
     Active Substance: ATEZOLIZUMAB
     Indication: TRIPLE NEGATIVE BREAST CANCER
     Route: 065
     Dates: start: 202007
  2. ABRAXANE [Suspect]
     Active Substance: PACLITAXEL
     Indication: TRIPLE NEGATIVE BREAST CANCER
     Route: 065
     Dates: start: 202007

REACTIONS (1)
  - Metastases to central nervous system [Unknown]
